FAERS Safety Report 23549370 (Version 1)
Quarter: 2024Q1

REPORT INFORMATION
  Report Type: Spontaneous
  Country: US (occurrence: US)
  Receive Date: 20240221
  Receipt Date: 20240221
  Transmission Date: 20240410
  Serious: No
  Sender: FDA-Public Use
  Company Number: US-PFIZER INC-PV202400023849

PATIENT
  Sex: Female

DRUGS (4)
  1. BRAFTOVI [Suspect]
     Active Substance: ENCORAFENIB
     Dosage: 300 MG FLAT DOSE ONCE DAILY ON DAYS 1 THROUGH 28 OF CYCLES 1 AND 2 AND BEYOND
     Route: 048
  2. BRAFTOVI [Suspect]
     Active Substance: ENCORAFENIB
     Dosage: TAKE 3 CAPSULES PER DAY. 28 DAY CYCLE
     Route: 048
  3. CETUXIMAB [Suspect]
     Active Substance: CETUXIMAB
     Dosage: ONCE ON DAY 1 OF CYCLE 1 Q28 DAYS
     Route: 042
  4. CETUXIMAB [Suspect]
     Active Substance: CETUXIMAB
     Dosage: ONCE DAILY ON DAYS 1, 8, 15, AND 22 OF CYCLES 2 AND BEYOND (Q28 DAYS)
     Route: 042

REACTIONS (1)
  - Neoplasm progression [Unknown]

NARRATIVE: CASE EVENT DATE: 20210326
